FAERS Safety Report 9690220 (Version 1)
Quarter: 2013Q4

REPORT INFORMATION
  Report Type: Spontaneous
  Country: US (occurrence: US)
  Receive Date: 20131115
  Receipt Date: 20131115
  Transmission Date: 20140711
  Serious: No
  Sender: FDA-Public Use
  Company Number: US-009507513-1311USA005390

PATIENT
  Age: 45 Year
  Sex: Female

DRUGS (4)
  1. DULERA [Suspect]
     Indication: ASTHMA
     Dosage: 200/5 MICROGRAM, 2 PUFFS, BID
     Route: 048
     Dates: start: 20131027
  2. PROTONIX [Concomitant]
     Dosage: UNKNOWN
  3. DILTIAZEM HYDROCHLORIDE [Concomitant]
     Dosage: UNKNOWN
  4. NEURONTIN [Concomitant]
     Dosage: UNKNOWN

REACTIONS (2)
  - Dysphonia [Not Recovered/Not Resolved]
  - Incorrect route of drug administration [Unknown]
